FAERS Safety Report 4980919-3 (Version None)
Quarter: 2006Q2

REPORT INFORMATION
  Report Type: 
  Country: None (occurrence: None)
  Receive Date: 20060424
  Receipt Date: 20050913
  Transmission Date: 20061013
  Serious: Yes (Hospitalization)
  Sender: FDA-Public Use
  Company Number: US-MERCK-0509USA01715

PATIENT
  Age: 63 Year
  Sex: Male
  Weight: 147 kg

DRUGS (9)
  1. VIOXX [Suspect]
     Indication: CARDIOVASCULAR DISORDER
     Route: 048
     Dates: start: 20000101, end: 20000101
  2. VIOXX [Suspect]
     Route: 048
     Dates: start: 20000101, end: 20000101
  3. VIOXX [Suspect]
     Indication: ARTHROPATHY
     Route: 048
     Dates: start: 20000101, end: 20000101
  4. VIOXX [Suspect]
     Route: 048
     Dates: start: 20000101, end: 20000101
  5. PRINIVIL [Concomitant]
     Route: 065
  6. GLUCOPHAGE [Concomitant]
     Route: 065
  7. ZYRTEC [Concomitant]
     Route: 065
  8. NITROGLYCERIN [Concomitant]
     Route: 065
  9. [THERAPY UNSPECIFIED] [Concomitant]
     Route: 065

REACTIONS (4)
  - ARTHROPATHY [None]
  - CEREBROVASCULAR ACCIDENT [None]
  - LABORATORY TEST ABNORMAL [None]
  - MYOCARDIAL INFARCTION [None]
